FAERS Safety Report 5782713-2 (Version None)
Quarter: 2008Q2

REPORT INFORMATION
  Report Type: 
  Country: None (occurrence: None)
  Receive Date: 20080619
  Receipt Date: 20080619
  Transmission Date: 20081010
  Serious: Yes (Other)
  Sender: FDA-Public Use
  Company Number: None

PATIENT
  Sex: Female
  Weight: 53.978 kg

DRUGS (1)
  1. BONIVA [Suspect]
     Indication: OSTEOPENIA
     Dosage: 1 TABLET MONTHLY ORAL
     Route: 048
     Dates: end: 20071201

REACTIONS (4)
  - BACK PAIN [None]
  - DECREASED ACTIVITY [None]
  - IMPAIRED WORK ABILITY [None]
  - PAIN [None]
